FAERS Safety Report 10028178 (Version 4)
Quarter: 2015Q2

REPORT INFORMATION
  Report Type: Spontaneous
  Country: US (occurrence: US)
  Receive Date: 20140321
  Receipt Date: 20150617
  Transmission Date: 20150821
  Serious: Yes (Hospitalization, Other)
  Sender: FDA-Public Use
  Company Number: US-SANOFI-AVENTIS-2012SA028264

PATIENT
  Age: 79 Year
  Sex: Female

DRUGS (8)
  1. ASPIRIN. [Concomitant]
     Active Substance: ASPIRIN
     Dosage: 81MG
  2. ZOCOR [Concomitant]
     Active Substance: SIMVASTATIN
     Dosage: 10MG
  3. VITAMIN D/CALCIUM [Concomitant]
     Dosage: 1200 MG
  4. ARMOUR THYROID [Concomitant]
     Active Substance: THYROID, PORCINE\THYROID, UNSPECIFIED
     Dosage: 60 MG
  5. LOVASTATIN. [Concomitant]
     Active Substance: LOVASTATIN
     Dosage: 20MG
  6. PREMPRO [Concomitant]
     Active Substance: ESTROGENS, CONJUGATED\MEDROXYPROGESTERONE ACETATE
  7. PLAVIX [Suspect]
     Active Substance: CLOPIDOGREL BISULFATE
     Indication: CEREBROVASCULAR ACCIDENT
     Route: 048
     Dates: start: 20090215, end: 20090915
  8. PLAVIX [Suspect]
     Active Substance: CLOPIDOGREL BISULFATE
     Indication: EYE OPERATION
     Route: 048
     Dates: start: 20090215, end: 20090915

REACTIONS (2)
  - Subdural haematoma [Unknown]
  - Multiple injuries [Unknown]

NARRATIVE: CASE EVENT DATE: 20090915
